FAERS Safety Report 7676870-0 (Version None)
Quarter: 2011Q3

REPORT INFORMATION
  Report Type: 
  Country: None (occurrence: None)
  Receive Date: 20110810
  Receipt Date: 20110810
  Transmission Date: 20111222
  Serious: No
  Sender: FDA-Public Use
  Company Number: None

PATIENT
  Sex: Male
  Weight: 79 kg

DRUGS (2)
  1. TAXOL [Suspect]
     Dosage: 88.2MG
     Dates: end: 20110711
  2. CARBOPLATIN [Suspect]
     Dosage: 243.75 MG
     Dates: end: 20110711

REACTIONS (5)
  - TACHYCARDIA [None]
  - WHITE BLOOD CELL COUNT DECREASED [None]
  - NEUTROPHIL COUNT DECREASED [None]
  - LYMPHOPENIA [None]
  - PLATELET COUNT DECREASED [None]
